FAERS Safety Report 10594510 (Version 1)
Quarter: 2014Q4

REPORT INFORMATION
  Report Type: Report from Study
  Country: US (occurrence: US)
  Receive Date: 20141120
  Receipt Date: 20141120
  Transmission Date: 20150529
  Serious: Yes (Other)
  Sender: FDA-Public Use
  Company Number: US-AMGEN-USASL2014088792

PATIENT
  Age: 44 Year
  Sex: Female

DRUGS (1)
  1. ENBREL [Suspect]
     Active Substance: ETANERCEPT
     Indication: ANKYLOSING SPONDYLITIS
     Dosage: 50 MG, QWK
     Route: 065
     Dates: start: 20140926

REACTIONS (7)
  - Dizziness [Unknown]
  - Injection site erythema [Recovered/Resolved]
  - Nausea [Recovered/Resolved]
  - Uveitis [Not Recovered/Not Resolved]
  - Candida infection [Not Recovered/Not Resolved]
  - Injection site rash [Unknown]
  - Oral pain [Recovered/Resolved]

NARRATIVE: CASE EVENT DATE: 2014
